FAERS Safety Report 9204362 (Version 2)
Quarter: 2014Q1

REPORT INFORMATION
  Report Type: Spontaneous
  Country: US (occurrence: US)
  Receive Date: 20130402
  Receipt Date: 20140219
  Transmission Date: 20141002
  Serious: Yes (Hospitalization)
  Sender: FDA-Public Use
  Company Number: US-BAYER-2013-038909

PATIENT
  Age: 42 Year
  Sex: Female

DRUGS (3)
  1. YAZ [Suspect]
  2. YASMIN [Suspect]
  3. OCELLA [Suspect]

REACTIONS (4)
  - Pulmonary embolism [Recovered/Resolved]
  - Injury [Recovered/Resolved]
  - Pain [Recovered/Resolved]
  - Pain [None]
